FAERS Safety Report 25266890 (Version 1)
Quarter: 2025Q2

REPORT INFORMATION
  Report Type: Spontaneous
  Country: GB (occurrence: GB)
  Receive Date: 20250505
  Receipt Date: 20250505
  Transmission Date: 20250716
  Serious: Yes (Other)
  Sender: DEXCEL LTD.
  Company Number: None

PATIENT
  Age: 50 Year

DRUGS (17)
  1. LAMOTRIGINE [Suspect]
     Active Substance: LAMOTRIGINE
     Dosage: 25 MG TABLETS ONE TO BE TAKEN AT NIGHT ( 75 MG) AND LAMOTRIGINE 50 MG TABLETS ONE TO BE TAKEN AT ...
  2. MelatoninMELATONIN (Specific Substance SUB8481) [Concomitant]
     Dosage: 2 MG MODIFIED-RELEASE TABLETS TAKE ONE AT NIGHT
  3. OMEPRAZOLE [Suspect]
     Active Substance: OMEPRAZOLE
     Dosage: 20 MG GASTRO-RESISTANT CAPSULES ONE TO BE TAKEN EACH DAY
  4. CodeineCODEINE (Specific Substance SUB4135) [Concomitant]
  5. ThiamineTHIAMINE [Concomitant]
  6. FamotidineFAMOTIDINE (Specific Substance SUB5582) [Concomitant]
  7. PAROXETINE [Suspect]
     Active Substance: PAROXETINE
  8. DocusateDOCUSATE (Specific Substance SUB5064) [Concomitant]
  9. BaclofenBACLOFEN (Specific Substance SUB538) [Concomitant]
  10. CyclizineCYCLIZINE (Specific Substance SUB4478) [Concomitant]
  11. TamsulosinTAMSULOSIN (Specific Substance SUB7202) [Concomitant]
  12. ParacetamolPARACETAMOL (Specific Substance SUB155) [Concomitant]
  13. Adcal-D3PARACETAMOL (Specific Substance SUB155) [Concomitant]
     Dosage: 1 TABLET TWICE A DAY
  14. Adcal-D3PARACETAMOL (Specific Substance SUB155) [Concomitant]
     Dosage: 5 MG TABLETS ONE TO BE TAKEN EACH DAY
  15. Fostair NEXThalerPARACETAMOL (Specific Substance SUB155) [Concomitant]
     Dosage: 100 / 6 MICROGRAMS / DOSE DRY POWDER INHALER MAINTENANCE 2 INHALATION TWICE DAILY; 1 INHALATION A...
  16. Promethazine hydrochlorideMELATONIN (Specific Substance SUB8481) [Concomitant]
     Dosage: 10 MG TABLETS ONE TO BE TAKEN AT NIGHT
  17. Senna MELATONIN (Specific Substance SUB8481) [Concomitant]
     Indication: Constipation

REACTIONS (1)
  - Inappropriate antidiuretic hormone secretion [Unknown]
